FAERS Safety Report 10641026 (Version 1)
Quarter: 2014Q4

REPORT INFORMATION
  Report Type: Spontaneous
  Country: US (occurrence: US)
  Receive Date: 20141209
  Receipt Date: 20141209
  Transmission Date: 20150529
  Serious: Yes (Other)
  Sender: FDA-Public Use
  Company Number: US-CELGENE-USA-2014114008

PATIENT

DRUGS (3)
  1. REVLIMID [Suspect]
     Active Substance: LENALIDOMIDE
     Indication: PLASMA CELL MYELOMA
     Dosage: 25 MILLIGRAM
     Route: 048
  2. DEXAMETHASONE. [Suspect]
     Active Substance: DEXAMETHASONE
     Indication: PLASMA CELL MYELOMA
     Route: 048
  3. PANOBINOSTAT [Suspect]
     Active Substance: PANOBINOSTAT
     Indication: PLASMA CELL MYELOMA
     Route: 048

REACTIONS (12)
  - Weight decreased [Unknown]
  - Electrocardiogram T wave inversion [Unknown]
  - Thrombocytopenia [Unknown]
  - Lymphopenia [Unknown]
  - Anaemia [Unknown]
  - Pulmonary embolism [Unknown]
  - Diarrhoea [Unknown]
  - Neutropenic infection [Unknown]
  - Neck pain [Unknown]
  - Nausea [Unknown]
  - Electrocardiogram QT prolonged [Unknown]
  - Neutropenia [Unknown]
